FAERS Safety Report 10674963 (Version 2)
Quarter: 2014Q4

REPORT INFORMATION
  Report Type: Spontaneous
  Country: US (occurrence: US)
  Receive Date: 20141224
  Receipt Date: 20141224
  Transmission Date: 20150529
  Serious: No
  Sender: FDA-Public Use
  Company Number: US-GLAXOSMITHKLINE-A1058266A

PATIENT

DRUGS (21)
  1. FLUTICASONE PROPIONATE NASAL SPRAY [Suspect]
     Active Substance: FLUTICASONE PROPIONATE
     Indication: NASAL CONGESTION
     Route: 045
  2. HCTZ [Concomitant]
     Active Substance: HYDROCHLOROTHIAZIDE
  3. PROPRANOLOL [Concomitant]
     Active Substance: PROPRANOLOL\PROPRANOLOL HYDROCHLORIDE
  4. RANITIDINE [Concomitant]
     Active Substance: RANITIDINE\RANITIDINE HYDROCHLORIDE
  5. JANUVIA [Concomitant]
     Active Substance: SITAGLIPTIN PHOSPHATE
  6. HYDROCODONE ACETAMINOPHEN [Concomitant]
     Active Substance: ACETAMINOPHEN\HYDROCODONE BITARTRATE
  7. VITAMIN C [Concomitant]
     Active Substance: ASCORBIC ACID
  8. BRIMONIDINE TARTRATE EYE DROPS, SOLUTION [Concomitant]
  9. OMEPRAZOLE. [Concomitant]
     Active Substance: OMEPRAZOLE
  10. TRAVATAN [Concomitant]
     Active Substance: TRAVOPROST
  11. KLOR-CON [Concomitant]
     Active Substance: POTASSIUM CHLORIDE
  12. NITROSTAT [Concomitant]
     Active Substance: NITROGLYCERIN
  13. TRIAMCINOLONE [Concomitant]
     Active Substance: TRIAMCINOLONE
  14. ETODOLAC. [Concomitant]
     Active Substance: ETODOLAC
  15. PAIN MEDICATION (UNSPECIFIED) [Concomitant]
     Route: 042
  16. DORZOLAMIDE/TIMOLOL OPHTHALMIC SOLUTION [Concomitant]
  17. HYDRALAZINE [Concomitant]
     Active Substance: HYDRALAZINE HYDROCHLORIDE
  18. PRESERVISION [Concomitant]
  19. NEILMED SINUS RINSE [Concomitant]
  20. LISINOPRIL. [Concomitant]
     Active Substance: LISINOPRIL
  21. VITAMIN B12 SHOT [Concomitant]

REACTIONS (2)
  - Off label use [Unknown]
  - Nasal discomfort [Unknown]
